FAERS Safety Report 7444152-8 (Version None)
Quarter: 2011Q2

REPORT INFORMATION
  Report Type: 
  Country: None (occurrence: None)
  Receive Date: 20110428
  Receipt Date: 20110428
  Transmission Date: 20111010
  Serious: Yes (Life-Threatening, Hospitalization, Disabling, Other)
  Sender: FDA-Public Use
  Company Number: None

PATIENT
  Age: 65 Year
  Sex: Male
  Weight: 158.3054 kg

DRUGS (1)
  1. CVS BRAND ALCOHOL PREP SWABS 70% ISOPROPYL ALCOHOL THE TRIAD GROUP [Suspect]
     Indication: TYPE 1 DIABETES MELLITUS
     Dosage: SINGLE-PACKAGED ALCOHOL PADS LEAST 6 A DAY TOP
     Route: 061
     Dates: start: 19980101, end: 20110118

REACTIONS (6)
  - APPARENT DEATH [None]
  - PRODUCT QUALITY ISSUE [None]
  - TRANSMISSION OF AN INFECTIOUS AGENT VIA A MEDICINAL PRODUCT [None]
  - MENINGITIS BACTERIAL [None]
  - HAEMOPHILUS INFECTION [None]
  - BACTERAEMIA [None]
